FAERS Safety Report 4684035-X (Version None)
Quarter: 2005Q2

REPORT INFORMATION
  Report Type: 
  Country: None (occurrence: None)
  Receive Date: 20050602
  Receipt Date: 20050303
  Transmission Date: 20051028
  Serious: Yes (Hospitalization)
  Sender: FDA-Public Use
  Company Number: 2005US000311

PATIENT
  Sex: Female

DRUGS (1)
  1. PROGRAF [Suspect]
     Dosage: 8.00 MG, TOTAL DOSE, ORAL
     Route: 048

REACTIONS (1)
  - DIZZINESS [None]
